FAERS Safety Report 8362324-5 (Version None)
Quarter: 2012Q2

REPORT INFORMATION
  Report Type: 
  Country: None (occurrence: None)
  Receive Date: 20120516
  Receipt Date: 20120510
  Transmission Date: 20120825
  Serious: Yes (Hospitalization, Other)
  Sender: FDA-Public Use
  Company Number: US-AMGEN-USASP2011035698

PATIENT
  Sex: Female

DRUGS (3)
  1. NEULASTA [Suspect]
     Indication: CHEMOTHERAPY
     Dates: start: 20110101
  2. CYCLOPHOSPHAMIDE [Concomitant]
     Dosage: UNK UNK, Q3WK
  3. TAXOTERE [Concomitant]
     Dosage: UNK UNK, Q3WK

REACTIONS (3)
  - BONE MARROW DISORDER [None]
  - ADVERSE DRUG REACTION [None]
  - FEBRILE NEUTROPENIA [None]
